FAERS Safety Report 9751234 (Version 1)
Quarter: 2013Q4

REPORT INFORMATION
  Report Type: Spontaneous
  Country: US (occurrence: US)
  Receive Date: 20131212
  Receipt Date: 20131212
  Transmission Date: 20140711
  Serious: No
  Sender: FDA-Public Use
  Company Number: US-BIOGENIDEC-2013BI100696

PATIENT
  Age: 48 Year
  Sex: Female

DRUGS (12)
  1. TECFIDERA [Suspect]
     Indication: MULTIPLE SCLEROSIS
     Route: 048
     Dates: start: 20131001, end: 20131008
  2. TECFIDERA [Suspect]
     Indication: MULTIPLE SCLEROSIS
     Route: 048
     Dates: start: 20131009
  3. PAROXETINE [Concomitant]
  4. PANTOPRAZOLE [Concomitant]
  5. MIRTAZAPINE [Concomitant]
  6. OMEGA 3 [Concomitant]
  7. COLACE [Concomitant]
  8. ATIVAN [Concomitant]
  9. VICODEN [Concomitant]
  10. LYRICA [Concomitant]
  11. ALLEGRA [Concomitant]
  12. MIDOL [Concomitant]

REACTIONS (3)
  - Flushing [Not Recovered/Not Resolved]
  - Diarrhoea [Not Recovered/Not Resolved]
  - Abdominal discomfort [Not Recovered/Not Resolved]
